FAERS Safety Report 4986469-2 (Version None)
Quarter: 2006Q2

REPORT INFORMATION
  Report Type: 
  Country: None (occurrence: None)
  Receive Date: 20060424
  Receipt Date: 20060413
  Transmission Date: 20061013
  Serious: Yes (Death)
  Sender: FDA-Public Use
  Company Number: 1199010660

PATIENT
  Age: 57 Year
  Sex: Male

DRUGS (15)
  1. CIPROFLOXACIN [Suspect]
     Indication: ABSCESS LIMB
     Dosage: 750 MG, TOTAL DAILY, ORAL
     Route: 048
     Dates: start: 19890123, end: 19890131
  2. AQUAMEPHYTON [Concomitant]
  3. CAPOTEN [Concomitant]
  4. CEFTAZIDIME [Concomitant]
  5. CLOXACILLIN SODIUM [Concomitant]
  6. CODEINE [Concomitant]
  7. EMPRACET [Concomitant]
  8. INSULIN [Concomitant]
  9. KAYEXALATE [Concomitant]
  10. LASIX [Concomitant]
  11. MAXERAN [Concomitant]
  12. NETILMICIN SULFATE [Concomitant]
  13. OSCAL [Concomitant]
  14. ROCALTROL [Concomitant]
  15. SLOW-K [Concomitant]

REACTIONS (9)
  - COMA [None]
  - ENCEPHALOPATHY [None]
  - HEPATIC FAILURE [None]
  - HEPATORENAL FAILURE [None]
  - HYPERAMMONAEMIA [None]
  - HYPOGLYCAEMIA [None]
  - HYPOTENSION [None]
  - METABOLIC DISORDER [None]
  - VIRAL INFECTION [None]
